FAERS Safety Report 21531596 (Version 1)
Quarter: 2022Q4

REPORT INFORMATION
  Report Type: Spontaneous
  Country: US (occurrence: None)
  Receive Date: 20221028
  Receipt Date: 20221028
  Transmission Date: 20230113
  Serious: No
  Sender: FDA-Public Use
  Company Number: None

PATIENT
  Age: 70 Year
  Sex: Male
  Weight: 71.21 kg

DRUGS (2)
  1. VORICONAZOLE [Suspect]
     Active Substance: VORICONAZOLE
     Indication: Upper respiratory tract infection
     Dosage: 200MG BID TAB   BID PO?
     Route: 048
     Dates: start: 20220329, end: 20220404
  2. VORICONAZOLE [Suspect]
     Active Substance: VORICONAZOLE
     Indication: Pulmonary mass

REACTIONS (6)
  - Vision blurred [None]
  - Headache [None]
  - Arthralgia [None]
  - Nausea [None]
  - Vomiting [None]
  - Visual impairment [None]

NARRATIVE: CASE EVENT DATE: 20220404
